FAERS Safety Report 6820518-1 (Version None)
Quarter: 2010Q3

REPORT INFORMATION
  Report Type: 
  Country: None (occurrence: None)
  Receive Date: 20100707
  Receipt Date: 20100621
  Transmission Date: 20110219
  Serious: Yes (Death, Life-Threatening, Hospitalization, Other)
  Sender: FDA-Public Use
  Company Number: PHEH2006US09631

PATIENT
  Sex: Female
  Weight: 68.027 kg

DRUGS (27)
  1. ZOMETA [Suspect]
     Indication: BREAST CANCER METASTATIC
     Dosage: UNK, UNK
     Dates: start: 20020801
  2. DURAGESIC-100 [Concomitant]
     Dosage: 50 MCG PATCH
  3. DURAGESIC-100 [Concomitant]
     Dosage: 100 MCG PATCH
  4. FEMARA [Concomitant]
     Indication: BREAST CANCER
  5. ALTACE [Concomitant]
     Dosage: 5 MG, UNK
  6. TAMOXIFEN CITRATE [Concomitant]
     Indication: BREAST CANCER
     Dosage: 20 MG, QD
  7. DIGOXIN [Concomitant]
     Dosage: 125 MG, QD
  8. LASIX [Concomitant]
     Indication: CARDIAC FAILURE CONGESTIVE
     Dosage: 40 MG, QD
  9. LASIX [Concomitant]
     Dosage: 80 MG, UNK
     Route: 042
  10. AROMASIN [Concomitant]
     Indication: BREAST CANCER
     Dosage: 25 MG ONCE DAILY
  11. ANTIDEPRESSANTS [Concomitant]
  12. RADIOTHERAPY [Concomitant]
  13. HYZAAR [Concomitant]
     Dosage: 50/12.5 MG ONCE DAILY
  14. AMIODARONE HCL [Concomitant]
     Dosage: 200 MG ONCE DAILY
  15. ZOLOFT [Concomitant]
     Indication: DEPRESSION
     Dosage: 50 MG ONCE DAILY
  16. COREG [Concomitant]
     Indication: HYPERTENSION
     Dosage: 6.25 MG, QD
  17. OXYCODONE HCL [Concomitant]
     Indication: PAIN
     Dosage: 20 MG, BID
  18. PERIOGARD [Concomitant]
  19. TRUSOPT [Concomitant]
  20. TRAVATAN [Concomitant]
  21. PILOCARPINE HYDROCHLORIDE [Concomitant]
  22. PROCHLORPERAZINE [Concomitant]
  23. HYDROCHLOROTHIAZIDE [Concomitant]
  24. LEVAQUIN [Concomitant]
  25. DICYCLOMINE [Concomitant]
  26. EPOGEN [Concomitant]
  27. OXYCONTIN [Concomitant]

REACTIONS (63)
  - ABDOMINAL PAIN [None]
  - ACCIDENTAL OVERDOSE [None]
  - ANXIETY [None]
  - AORTIC VALVE STENOSIS [None]
  - APPENDICECTOMY [None]
  - ATRIAL FIBRILLATION [None]
  - BLADDER MASS [None]
  - BLOOD CHOLESTEROL INCREASED [None]
  - BLOOD GLUCOSE INCREASED [None]
  - BLOOD TRIGLYCERIDES INCREASED [None]
  - BONE DISORDER [None]
  - BRAIN NATRIURETIC PEPTIDE INCREASED [None]
  - BREAST CANCER METASTATIC [None]
  - CARDIAC FAILURE CONGESTIVE [None]
  - CARDIAC PACEMAKER INSERTION [None]
  - CARDIOMEGALY [None]
  - CHEST DISCOMFORT [None]
  - CHEST PAIN [None]
  - DEBRIDEMENT [None]
  - DEHYDRATION [None]
  - DEPRESSION [None]
  - DIARRHOEA [None]
  - DYSPNOEA [None]
  - DYSPNOEA EXERTIONAL [None]
  - ENDOTRACHEAL INTUBATION [None]
  - FALL [None]
  - GASTROENTERITIS RADIATION [None]
  - GASTROOESOPHAGEAL REFLUX DISEASE [None]
  - HYPERTENSION [None]
  - HYPOKALAEMIA [None]
  - HYPONATRAEMIA [None]
  - HYSTERECTOMY [None]
  - IMPLANTABLE DEFIBRILLATOR INSERTION [None]
  - INJURY [None]
  - JAW DISORDER [None]
  - JAW FRACTURE [None]
  - LEFT ATRIAL DILATATION [None]
  - LEFT VENTRICULAR DYSFUNCTION [None]
  - LUNG INFILTRATION [None]
  - MALAISE [None]
  - MITRAL VALVE INCOMPETENCE [None]
  - NAUSEA [None]
  - OBESITY [None]
  - OOPHORECTOMY [None]
  - OSTEOARTHRITIS [None]
  - OSTEOMYELITIS [None]
  - OSTEONECROSIS OF JAW [None]
  - PAIN [None]
  - PLEURAL EFFUSION [None]
  - PNEUMONIA [None]
  - PULMONARY HYPERTENSION [None]
  - PULMONARY OEDEMA [None]
  - RESPIRATORY FAILURE [None]
  - SMALL INTESTINAL OBSTRUCTION [None]
  - THORACIC CAVITY DRAINAGE [None]
  - TOOTH EXTRACTION [None]
  - TOOTH LOSS [None]
  - TRANSITIONAL CELL CARCINOMA [None]
  - TRICUSPID VALVE INCOMPETENCE [None]
  - ULTRASOUND PELVIS ABNORMAL [None]
  - UNRESPONSIVE TO STIMULI [None]
  - URINE CYTOLOGY ABNORMAL [None]
  - VOMITING [None]
